FAERS Safety Report 4636964-0 (Version None)
Quarter: 2005Q2

REPORT INFORMATION
  Report Type: 
  Country: None (occurrence: None)
  Receive Date: 20050414
  Receipt Date: 20050404
  Transmission Date: 20051028
  Serious: Yes (Hospitalization)
  Sender: FDA-Public Use
  Company Number: ITWYE553804APR05

PATIENT
  Age: 35 Year
  Sex: Female

DRUGS (1)
  1. RAPAMUNE [Suspect]
     Indication: PROPHYLAXIS AGAINST TRANSPLANT REJECTION
     Dosage: 2 MG 1X PER 1 DAY; ORAL
     Route: 048
     Dates: start: 20050315, end: 20050325

REACTIONS (3)
  - BLOOD BILIRUBIN INCREASED [None]
  - HAEMOLYSIS [None]
  - PLATELET COUNT DECREASED [None]
